FAERS Safety Report 24706368 (Version 4)
Quarter: 2024Q4

REPORT INFORMATION
  Report Type: Report from Study
  Country: CN (occurrence: CN)
  Receive Date: 20241206
  Receipt Date: 20241230
  Transmission Date: 20250115
  Serious: Yes (Other)
  Sender: ROCHE
  Company Number: CN-ROCHE-10000126448

PATIENT
  Age: 62 Year
  Sex: Female
  Weight: 60 kg

DRUGS (63)
  1. POLATUZUMAB VEDOTIN [Suspect]
     Active Substance: POLATUZUMAB VEDOTIN
     Indication: Diffuse large B-cell lymphoma
     Route: 042
     Dates: start: 20240712, end: 20240712
  2. POLATUZUMAB VEDOTIN [Suspect]
     Active Substance: POLATUZUMAB VEDOTIN
     Route: 042
     Dates: start: 20240828, end: 20240828
  3. RITUXIMAB [Suspect]
     Active Substance: RITUXIMAB
     Indication: Diffuse large B-cell lymphoma
     Dosage: THERAPY START DATE  11-JUL-2024?START DATE OF MOST RECENT DOSE OF STUDY DRUG: 27-AUG-2024
     Route: 042
     Dates: start: 20240711, end: 20240827
  4. RITUXIMAB [Suspect]
     Active Substance: RITUXIMAB
     Dosage: THERAPY START DATE  11-JUL-2024?START DATE OF MOST RECENT DOSE OF STUDY DRUG: 27-AUG-2024
     Route: 042
     Dates: start: 20241128, end: 20241128
  5. CYCLOPHOSPHAMIDE [Suspect]
     Active Substance: CYCLOPHOSPHAMIDE
     Indication: Diffuse large B-cell lymphoma
     Route: 042
     Dates: start: 20240712, end: 20240712
  6. CYCLOPHOSPHAMIDE [Suspect]
     Active Substance: CYCLOPHOSPHAMIDE
     Route: 042
     Dates: start: 20240828, end: 20240828
  7. DOXORUBICIN HYDROCHLORIDE [Suspect]
     Active Substance: DOXORUBICIN HYDROCHLORIDE
     Indication: Diffuse large B-cell lymphoma
     Dosage: DATE OF FIRST DOSE OF STUDY DRUG : 11-JUL-2024?START DATE OF MOST RECENT DOSE OF STUDY DRUG 28-AUG-2
     Route: 042
     Dates: start: 20240712, end: 20240828
  8. PREDNISONE ACETATE [Suspect]
     Active Substance: PREDNISONE ACETATE
     Indication: Diffuse large B-cell lymphoma
     Dosage: DATE OF FIRST DOSE OF STUDY DRUG: 11-JUL-2024?START DATE OF MOST RECENT DOSE OF STUDY DRUG 28-AUG-20
     Route: 048
     Dates: start: 20240712, end: 20240901
  9. LEVOTHYROXINE SODIUM [Concomitant]
     Active Substance: LEVOTHYROXINE SODIUM
     Route: 048
     Dates: start: 202312
  10. ZOLPIDEM TARTRATE [Concomitant]
     Active Substance: ZOLPIDEM TARTRATE
     Route: 048
     Dates: start: 20231221
  11. Bicyclol Tablets [Concomitant]
     Route: 048
     Dates: start: 20240802
  12. Esomeprazole magnesium enteric-coated tablet [Concomitant]
     Route: 048
     Dates: start: 20240802
  13. ATORVASTATIN CALCIUM [Concomitant]
     Active Substance: ATORVASTATIN CALCIUM
     Route: 048
     Dates: start: 20240826
  14. SODIUM BICARBONATE [Concomitant]
     Active Substance: SODIUM BICARBONATE
     Route: 042
     Dates: start: 20240826, end: 20240828
  15. SODIUM BICARBONATE [Concomitant]
     Active Substance: SODIUM BICARBONATE
     Route: 042
     Dates: start: 20240920, end: 20240920
  16. SODIUM BICARBONATE [Concomitant]
     Active Substance: SODIUM BICARBONATE
     Route: 042
     Dates: start: 20241012, end: 20241013
  17. SODIUM BICARBONATE [Concomitant]
     Active Substance: SODIUM BICARBONATE
     Route: 042
     Dates: start: 20241105, end: 20241106
  18. Nifedipine sustained-release tablet [Concomitant]
     Route: 048
     Dates: start: 2021
  19. LIDOCAINE HYDROCHLORIDE [Concomitant]
     Active Substance: LIDOCAINE HYDROCHLORIDE
     Indication: Local anaesthesia
     Route: 042
     Dates: start: 20240826, end: 20240826
  20. LIDOCAINE HYDROCHLORIDE [Concomitant]
     Active Substance: LIDOCAINE HYDROCHLORIDE
     Route: 042
     Dates: start: 20241104, end: 20241104
  21. DEXAMETHASONE SODIUM PHOSPHATE [Concomitant]
     Active Substance: DEXAMETHASONE SODIUM PHOSPHATE
     Route: 042
     Dates: start: 20240827, end: 20240827
  22. DEXAMETHASONE SODIUM PHOSPHATE [Concomitant]
     Active Substance: DEXAMETHASONE SODIUM PHOSPHATE
     Route: 042
     Dates: start: 20240920, end: 20240920
  23. DEXAMETHASONE SODIUM PHOSPHATE [Concomitant]
     Active Substance: DEXAMETHASONE SODIUM PHOSPHATE
     Route: 042
     Dates: start: 20240921, end: 20240921
  24. DEXAMETHASONE SODIUM PHOSPHATE [Concomitant]
     Active Substance: DEXAMETHASONE SODIUM PHOSPHATE
     Route: 042
     Dates: start: 20241012, end: 20241012
  25. DEXAMETHASONE SODIUM PHOSPHATE [Concomitant]
     Active Substance: DEXAMETHASONE SODIUM PHOSPHATE
     Route: 042
     Dates: start: 20241105, end: 20241105
  26. PROMETHAZINE [Concomitant]
     Active Substance: PROMETHAZINE HYDROCHLORIDE
     Route: 030
     Dates: start: 20240828, end: 20240828
  27. PROMETHAZINE [Concomitant]
     Active Substance: PROMETHAZINE HYDROCHLORIDE
     Route: 030
     Dates: start: 20240827, end: 20240827
  28. PROMETHAZINE [Concomitant]
     Active Substance: PROMETHAZINE HYDROCHLORIDE
     Route: 030
     Dates: start: 20240920, end: 20240920
  29. PROMETHAZINE [Concomitant]
     Active Substance: PROMETHAZINE HYDROCHLORIDE
     Route: 030
     Dates: start: 20241013, end: 20241013
  30. PROMETHAZINE [Concomitant]
     Active Substance: PROMETHAZINE HYDROCHLORIDE
     Route: 030
     Dates: start: 20241105, end: 20241105
  31. OLANZAPINE [Concomitant]
     Active Substance: OLANZAPINE
     Route: 048
     Dates: start: 20240827, end: 20240827
  32. Netupitantand Palonosetron Hydrochloride capsules [Concomitant]
     Route: 048
     Dates: start: 20240828, end: 20240828
  33. Netupitantand Palonosetron Hydrochloride capsules [Concomitant]
     Route: 048
     Dates: start: 20240921, end: 20240921
  34. Netupitantand Palonosetron Hydrochloride capsules [Concomitant]
     Route: 048
     Dates: start: 20241013, end: 20241013
  35. Netupitantand Palonosetron Hydrochloride capsules [Concomitant]
     Route: 048
     Dates: start: 20241105, end: 20241105
  36. Amikacin Sulfate Injection [Concomitant]
     Route: 042
     Dates: start: 20240914, end: 20240920
  37. Levofloxacin hydrochloride sodium chloride injection [Concomitant]
     Route: 042
     Dates: start: 20240914, end: 20240920
  38. OSELTAMIVIR PHOSPHATE [Concomitant]
     Active Substance: OSELTAMIVIR PHOSPHATE
     Route: 048
     Dates: start: 20240914, end: 20240918
  39. DEXTROSE\SODIUM CHLORIDE [Concomitant]
     Active Substance: DEXTROSE\SODIUM CHLORIDE
     Route: 042
     Dates: start: 20240914, end: 20240916
  40. DEXTROSE\SODIUM CHLORIDE [Concomitant]
     Active Substance: DEXTROSE\SODIUM CHLORIDE
     Route: 042
     Dates: start: 20240920, end: 20240920
  41. DEXTROSE\SODIUM CHLORIDE [Concomitant]
     Active Substance: DEXTROSE\SODIUM CHLORIDE
     Route: 042
     Dates: start: 20241012, end: 20241013
  42. DEXTROSE\SODIUM CHLORIDE [Concomitant]
     Active Substance: DEXTROSE\SODIUM CHLORIDE
     Route: 042
     Dates: start: 20241105, end: 20241106
  43. POTASSIUM CHLORIDE [Concomitant]
     Active Substance: POTASSIUM CHLORIDE
     Route: 042
     Dates: start: 20240914, end: 20240916
  44. POTASSIUM CHLORIDE [Concomitant]
     Active Substance: POTASSIUM CHLORIDE
     Route: 048
     Dates: start: 20240915, end: 20240922
  45. ASCORBIC ACID [Concomitant]
     Active Substance: ASCORBIC ACID
     Route: 042
     Dates: start: 20240914, end: 20240921
  46. LACTULOSE [Concomitant]
     Active Substance: LACTULOSE
     Route: 048
     Dates: start: 20240920, end: 20240922
  47. Low molecular-weight Heparin Calcium Injection [Concomitant]
     Dosage: 4100 IU
     Route: 058
     Dates: start: 20240914, end: 20240921
  48. Compound Guaiacol Potassium Sulfonale Oral Solution [Concomitant]
     Route: 048
     Dates: start: 20240916, end: 20240922
  49. ESCITALOPRAM OXALATE [Concomitant]
     Active Substance: ESCITALOPRAM OXALATE
     Route: 048
     Dates: start: 20240918, end: 20240919
  50. Metoclopramide Dihydrochloride Injection [Concomitant]
     Route: 042
     Dates: start: 20240919, end: 20240921
  51. QUETIAPINE FUMARATE [Concomitant]
     Active Substance: QUETIAPINE FUMARATE
     Route: 048
     Dates: start: 20240918, end: 20240918
  52. Paracetamol and Dihydrocodeine Tartrate Tablets [Concomitant]
     Route: 048
     Dates: start: 20241010, end: 20241014
  53. Paracetamol and Dihydrocodeine Tartrate Tablets [Concomitant]
     Route: 048
     Dates: start: 20240919, end: 20240919
  54. LORAZEPAM [Concomitant]
     Active Substance: LORAZEPAM
     Route: 048
     Dates: start: 20240920, end: 20240926
  55. LORAZEPAM [Concomitant]
     Active Substance: LORAZEPAM
     Route: 048
     Dates: start: 20240919, end: 20240919
  56. SHENG XUE BAO HE JI [Concomitant]
     Route: 048
     Dates: start: 20241010, end: 20241014
  57. FLUCONAZOLE [Concomitant]
     Active Substance: FLUCONAZOLE
     Route: 048
     Dates: start: 20241010, end: 20241016
  58. SULFAMETHOXAZOLE [Concomitant]
     Active Substance: SULFAMETHOXAZOLE
     Route: 048
     Dates: start: 20241010, end: 20241011
  59. LEVOFLOXACIN [Concomitant]
     Active Substance: LEVOFLOXACIN
     Route: 048
     Dates: start: 20241011, end: 20241016
  60. ACYCLOVIR [Concomitant]
     Active Substance: ACYCLOVIR
     Indication: Infection prophylaxis
     Route: 048
     Dates: start: 20241010, end: 20241016
  61. Reduced Glutathione for Injection [Concomitant]
     Route: 042
     Dates: start: 20241105, end: 20241106
  62. AI YU JIAO NANG [Concomitant]
     Route: 048
     Dates: start: 20241106
  63. SODIUM HOUTTUYFONATE [Concomitant]
     Route: 058
     Dates: start: 20241106, end: 20241106

REACTIONS (10)
  - Respiratory tract infection [Recovered/Resolved]
  - Neutropenia [Recovered/Resolved]
  - Alanine aminotransferase increased [Recovered/Resolved]
  - Aspartate aminotransferase increased [Recovered/Resolved]
  - Influenza [Recovered/Resolved]
  - Constipation [Recovered/Resolved]
  - Skin infection [Recovered/Resolved]
  - Anaemia [Recovering/Resolving]
  - Myelosuppression [Recovered/Resolved]
  - Mouth ulceration [Recovered/Resolved]

NARRATIVE: CASE EVENT DATE: 20240802
